FAERS Safety Report 11366655 (Version 1)
Quarter: 2015Q3

REPORT INFORMATION
  Report Type: Spontaneous
  Country: US (occurrence: US)
  Receive Date: 20150811
  Receipt Date: 20150811
  Transmission Date: 20151125
  Serious: No
  Sender: FDA-Public Use
  Company Number: US-ELI_LILLY_AND_COMPANY-US201303004693

PATIENT
  Sex: Male

DRUGS (1)
  1. AXIRON [Suspect]
     Active Substance: TESTOSTERONE
     Indication: BLOOD TESTOSTERONE DECREASED
     Dosage: 60 MG, QD (ONE PUMP UNDER EACH ARM A DAY)
     Route: 061
     Dates: start: 20130301

REACTIONS (4)
  - Depression [Unknown]
  - Feeling abnormal [Unknown]
  - Libido decreased [Unknown]
  - Performance status decreased [Unknown]

NARRATIVE: CASE EVENT DATE: 20130301
